FAERS Safety Report 7759824-5 (Version None)
Quarter: 2011Q3

REPORT INFORMATION
  Report Type: 
  Country: None (occurrence: None)
  Receive Date: 20110919
  Receipt Date: 20110914
  Transmission Date: 20111222
  Serious: Yes (Hospitalization)
  Sender: FDA-Public Use
  Company Number: PT-GILEAD-2011-0043899

PATIENT
  Sex: Male

DRUGS (2)
  1. EFAVIRENZ [Concomitant]
     Indication: HIV INFECTION
  2. TRUVADA [Suspect]
     Indication: HIV INFECTION

REACTIONS (2)
  - RASH [None]
  - UPPER LIMB FRACTURE [None]
